FAERS Safety Report 6085135-2 (Version None)
Quarter: 2009Q1

REPORT INFORMATION
  Report Type: 
  Country: None (occurrence: None)
  Receive Date: 20090220
  Receipt Date: 20090210
  Transmission Date: 20090719
  Serious: No
  Sender: FDA-Public Use
  Company Number: US-BAXTER-2008BH001847

PATIENT
  Age: 46 Year
  Sex: Female
  Weight: 58 kg

DRUGS (3)
  1. HEPARIN SODIUM INJECTION [Suspect]
     Indication: FIBROMUSCULAR DYSPLASIA
     Route: 058
     Dates: start: 19970101, end: 20080301
  2. RESTORIL [Concomitant]
     Indication: SLEEP DISORDER
     Route: 048
  3. VITAMIN B-12 [Concomitant]
     Indication: GASTRIC BYPASS
     Route: 065

REACTIONS (9)
  - CELLULITIS [None]
  - COSTOCHONDRITIS [None]
  - INJECTION SITE ABSCESS [None]
  - INJECTION SITE INFECTION [None]
  - INJECTION SITE PAIN [None]
  - INJECTION SITE SWELLING [None]
  - INJECTION SITE WARMTH [None]
  - NAUSEA [None]
  - NIGHT SWEATS [None]
